FAERS Safety Report 7690708-7 (Version None)
Quarter: 2011Q3

REPORT INFORMATION
  Report Type: 
  Country: None (occurrence: None)
  Receive Date: 20110818
  Receipt Date: 20110810
  Transmission Date: 20111222
  Serious: Yes (Other)
  Sender: FDA-Public Use
  Company Number: CH-SANOFI-AVENTIS-2011SA051360

PATIENT
  Sex: Male

DRUGS (1)
  1. ARAVA [Suspect]
     Route: 065

REACTIONS (1)
  - RHABDOMYOLYSIS [None]
